FAERS Safety Report 19053905 (Version 1)
Quarter: 2021Q1

REPORT INFORMATION
  Report Type: Spontaneous
  Country: GB (occurrence: GB)
  Receive Date: 20210324
  Receipt Date: 20210324
  Transmission Date: 20210420
  Serious: Yes (Other)
  Sender: FDA-Public Use
  Company Number: NVSC2021GB062701

PATIENT
  Age: 24 Year
  Sex: Male
  Weight: 88 kg

DRUGS (7)
  1. CYCLOPHOSPHAMIDE. [Suspect]
     Active Substance: CYCLOPHOSPHAMIDE
     Indication: HISTIOCYTIC SARCOMA
     Dosage: UNK UNK, CYCLIC (CHOP REGIMEN)
     Route: 065
     Dates: start: 202004, end: 202007
  2. PREDNISOLONE. [Suspect]
     Active Substance: PREDNISOLONE
     Indication: HISTIOCYTIC SARCOMA
     Dosage: UNK UNK, CYCLIC (CHOP REGIMEN)
     Route: 065
     Dates: start: 202004, end: 202007
  3. PARAPLATIN [Suspect]
     Active Substance: CARBOPLATIN
     Indication: HISTIOCYTIC SARCOMA
     Dosage: UNK (ICE REGIMEN)
     Route: 065
     Dates: start: 202008, end: 202009
  4. VINCRISTINE [Suspect]
     Active Substance: VINCRISTINE
     Indication: PRODUCT USED FOR UNKNOWN INDICATION
     Dosage: UNK UNK, CYCLIC (CHOP REGIMEN)
     Route: 065
     Dates: start: 202004, end: 202007
  5. DOXORUBICIN HYDROCHLORIDE. [Suspect]
     Active Substance: DOXORUBICIN HYDROCHLORIDE
     Indication: HISTIOCYTIC SARCOMA
     Dosage: UNK UNK, CYCLIC (CHOP REGIMEN)
     Route: 065
     Dates: start: 202004, end: 202007
  6. IFOSFAMIDE. [Suspect]
     Active Substance: IFOSFAMIDE
     Indication: HISTIOCYTIC SARCOMA
     Dosage: UNK (ICE REGIMEN)
     Route: 065
     Dates: start: 202008, end: 202009
  7. VEPESID [Suspect]
     Active Substance: ETOPOSIDE
     Indication: HISTIOCYTIC SARCOMA
     Dosage: UNK (ICE REGIMEN)
     Route: 065
     Dates: start: 202008, end: 202009

REACTIONS (10)
  - Lymphadenopathy [Unknown]
  - Product use in unapproved indication [Unknown]
  - Therapy partial responder [Unknown]
  - Disease progression [Unknown]
  - Off label use [Unknown]
  - Metastatic neoplasm [Unknown]
  - Abdominal mass [Unknown]
  - Pain [Unknown]
  - Hepatic lesion [Unknown]
  - Pancreatic mass [Unknown]
